FAERS Safety Report 7386581-7 (Version None)
Quarter: 2011Q1

REPORT INFORMATION
  Report Type: 
  Country: None (occurrence: None)
  Receive Date: 20110331
  Receipt Date: 20110325
  Transmission Date: 20110831
  Serious: Yes (Death, Other)
  Sender: FDA-Public Use
  Company Number: FR-GENZYME-FLUD-1000915

PATIENT
  Age: 16 Year
  Sex: Male

DRUGS (12)
  1. FLUDARA [Suspect]
     Indication: ACUTE LEUKAEMIA
     Route: 065
  2. MYCOPHENOLATE MOFETIL [Concomitant]
     Indication: PROPHYLAXIS AGAINST GRAFT VERSUS HOST DISEASE
     Route: 065
  3. CYTARABINE [Suspect]
     Indication: STEM CELL TRANSPLANT
     Route: 065
  4. CYCLOPHOSPHAMIDE [Suspect]
     Indication: STEM CELL TRANSPLANT
     Route: 065
  5. CYCLOPHOSPHAMIDE [Suspect]
     Indication: ACUTE LEUKAEMIA
  6. FLUDARA [Suspect]
     Route: 065
  7. FLUDARA [Suspect]
     Indication: STEM CELL TRANSPLANT
     Route: 065
  8. CYCLOSPORINE [Concomitant]
     Indication: PROPHYLAXIS AGAINST GRAFT VERSUS HOST DISEASE
     Route: 065
  9. GRANULOCYTE COLONY STIMULATING FACTOR [Suspect]
     Indication: ACUTE LEUKAEMIA
     Dosage: UNK
     Route: 065
  10. METHYLPREDNISOLONE [Concomitant]
     Indication: PROPHYLAXIS AGAINST GRAFT VERSUS HOST DISEASE
     Dosage: 1 MG/KG, UNK
     Route: 065
  11. CYTARABINE [Suspect]
     Indication: ACUTE LEUKAEMIA
     Route: 065
  12. GRANULOCYTE COLONY STIMULATING FACTOR [Suspect]
     Indication: STEM CELL TRANSPLANT
     Dosage: UNK
     Route: 065

REACTIONS (6)
  - GASTROINTESTINAL HAEMORRHAGE [None]
  - DEATH [None]
  - SYSTEMIC CANDIDA [None]
  - ACUTE GRAFT VERSUS HOST DISEASE [None]
  - FUNGAL SKIN INFECTION [None]
  - PANCYTOPENIA [None]
